FAERS Safety Report 5026272-0 (Version None)
Quarter: 2006Q2

REPORT INFORMATION
  Report Type: 
  Country: None (occurrence: None)
  Receive Date: 20060608
  Receipt Date: 20060523
  Transmission Date: 20061013
  Serious: Yes (Disabling, Other)
  Sender: FDA-Public Use
  Company Number: 2005138973

PATIENT
  Age: 43 Year
  Sex: Female
  Weight: 77 kg

DRUGS (4)
  1. ZARONTIN [Suspect]
     Indication: EPILEPSY
     Dosage: 1750 MG (250 MG, 7 IN 1 D), ORAL; OVER 30 YEARS
     Route: 048
  2. KEPPRA [Suspect]
     Indication: EPILEPSY
  3. ETHOSUXIMIDE [Suspect]
     Indication: EPILEPSY
  4. CARBAMAZEPINE [Suspect]
     Indication: EPILEPSY

REACTIONS (10)
  - ANXIETY [None]
  - ASTHENIA [None]
  - CONVULSION [None]
  - DRUG INEFFECTIVE [None]
  - FEELING ABNORMAL [None]
  - HEADACHE [None]
  - IMPAIRED DRIVING ABILITY [None]
  - MEMORY IMPAIRMENT [None]
  - MOOD SWINGS [None]
  - NERVOUSNESS [None]
